FAERS Safety Report 18188060 (Version 1)
Quarter: 2020Q3

REPORT INFORMATION
  Report Type: Spontaneous
  Country: ES (occurrence: ES)
  Receive Date: 20200824
  Receipt Date: 20200824
  Transmission Date: 20201103
  Serious: Yes (Hospitalization)
  Sender: FDA-Public Use
  Company Number: ES-TEVA-2020-ES-1816979

PATIENT
  Age: 64 Year
  Sex: Female

DRUGS (6)
  1. HIDROXIZINA (1729A) [Concomitant]
     Indication: COLITIS ULCERATIVE
     Dosage: 25 MG
     Route: 048
  2. RESINCOLESTIRAMINA 4 G POLVO PARA SUSPENSION ORAL , 50 SOBRES [Concomitant]
     Indication: COLITIS ULCERATIVE
     Dosage: 4 GRAM
     Route: 048
  3. DALACIN 300 MG CAPSULAS DURAS , 24 CAPSULAS [Concomitant]
     Indication: TOOTH EXTRACTION
     Dosage: 300 MG
     Route: 048
     Dates: start: 20200624, end: 20200630
  4. AMOXICILINA + ACIDO CLAVULANICO [Suspect]
     Active Substance: AMOXICILLIN\CLAVULANIC ACID
     Indication: TOOTH EXTRACTION
     Dosage: 1 DOSAGE FORMS
     Route: 048
     Dates: start: 20200610, end: 20200617
  5. AMOXICILINA NORMON 750 MG COMPRIMIDOS EFG  , 20 COMPRIMIDOS [Concomitant]
     Indication: TOOTH EXTRACTION
     Dosage: 750 MG
     Route: 048
     Dates: start: 20200526, end: 20200601
  6. MEZAVANT 1.200 MG COMPRIMIDOS DE LIBERACION PROLONGADA GASTRORRESISTEN [Concomitant]
     Indication: COLITIS ULCERATIVE
     Dosage: 3.6 GRAM
     Route: 048

REACTIONS (1)
  - Hepatitis acute [Recovering/Resolving]

NARRATIVE: CASE EVENT DATE: 20200701
